FAERS Safety Report 24881384 (Version 2)
Quarter: 2025Q1

REPORT INFORMATION
  Report Type: Spontaneous
  Country: US (occurrence: US)
  Receive Date: 20250124
  Receipt Date: 20250131
  Transmission Date: 20250409
  Serious: Yes (Hospitalization, Other)
  Sender: NOVO NORDISK
  Company Number: US-NOVOPROD-1332408

PATIENT
  Sex: Female

DRUGS (2)
  1. VICTOZA [Suspect]
     Active Substance: LIRAGLUTIDE
     Indication: Type 2 diabetes mellitus
     Route: 058
     Dates: start: 2017, end: 2024
  2. JARDIANCE [Suspect]
     Active Substance: EMPAGLIFLOZIN
     Indication: Product used for unknown indication

REACTIONS (8)
  - Diabetic ketoacidosis [Recovered/Resolved]
  - Intervertebral disc protrusion [Recovered/Resolved]
  - Joint injury [Recovered/Resolved]
  - Thrombosis [Recovered/Resolved]
  - Spinal fusion surgery [Recovered/Resolved]
  - Knee operation [Recovered/Resolved]
  - Spinal operation [Recovered/Resolved]
  - Fall [Recovered/Resolved]

NARRATIVE: CASE EVENT DATE: 20190101
